FAERS Safety Report 18786512 (Version 1)
Quarter: 2021Q1

REPORT INFORMATION
  Report Type: Spontaneous
  Country: ES (occurrence: ES)
  Receive Date: 20210126
  Receipt Date: 20210126
  Transmission Date: 20210419
  Serious: Yes (Other)
  Sender: FDA-Public Use
  Company Number: ES-ASTRAZENECA-2021A009484

PATIENT
  Age: 58 Year
  Sex: Female

DRUGS (5)
  1. AMOXICILINA (108A) [Concomitant]
     Active Substance: AMOXICILLIN
     Indication: OESOPHAGITIS
     Route: 048
     Dates: start: 20201026
  2. TEGRETOL [Interacting]
     Active Substance: CARBAMAZEPINE
     Indication: EPILEPSY
     Route: 048
     Dates: start: 20150922
  3. LAMICTAL [Concomitant]
     Active Substance: LAMOTRIGINE
     Indication: EPILEPSY
     Route: 048
  4. OMEPRAZOL (2141A) [Suspect]
     Active Substance: OMEPRAZOLE
     Indication: OESOPHAGITIS
     Route: 048
     Dates: start: 20201026, end: 20201027
  5. CLARITROMICINA (967A) [Interacting]
     Active Substance: CLARITHROMYCIN
     Indication: OESOPHAGITIS
     Route: 048
     Dates: start: 20201026, end: 20201027

REACTIONS (3)
  - Balance disorder [Recovered/Resolved]
  - Vomiting [Recovered/Resolved]
  - Nausea [Recovered/Resolved]

NARRATIVE: CASE EVENT DATE: 20201027
